FAERS Safety Report 24638943 (Version 1)
Quarter: 2024Q4

REPORT INFORMATION
  Report Type: Spontaneous
  Country: US (occurrence: US)
  Receive Date: 20241119
  Receipt Date: 20241119
  Transmission Date: 20250115
  Serious: No
  Sender: SANOFI AVENTIS
  Company Number: US-SANOFI-02297413

PATIENT
  Age: 63 Year
  Sex: Male

DRUGS (2)
  1. AMARYL [Suspect]
     Active Substance: GLIMEPIRIDE
     Indication: Type 2 diabetes mellitus
     Dosage: UNK UNK, QD
  2. AMARYL [Suspect]
     Active Substance: GLIMEPIRIDE
     Dosage: UNK UNK, TID

REACTIONS (6)
  - Asthenia [Unknown]
  - Fatigue [Unknown]
  - Depression [Unknown]
  - Ocular hyperaemia [Unknown]
  - Blood glucose abnormal [Unknown]
  - Off label use [Unknown]
